FAERS Safety Report 5400518-9 (Version None)
Quarter: 2007Q3

REPORT INFORMATION
  Report Type: 
  Country: None (occurrence: None)
  Receive Date: 20070730
  Receipt Date: 20070720
  Transmission Date: 20080115
  Serious: Yes (Life-Threatening, Hospitalization)
  Sender: FDA-Public Use
  Company Number: JP-ASTRAZENECA-2007SE04114

PATIENT
  Age: 35945 Day
  Sex: Female
  Weight: 45 kg

DRUGS (9)
  1. CANDESARTAN CILEXETIL [Suspect]
     Indication: HYPERTENSION
     Route: 048
     Dates: end: 20070501
  2. CANDESARTAN CILEXETIL [Suspect]
     Route: 048
     Dates: start: 20070610, end: 20070712
  3. ESTAZOLAM [Suspect]
     Indication: INSOMNIA
     Route: 048
     Dates: start: 20070610, end: 20070712
  4. ALLOPURINOL [Suspect]
     Indication: HYPERURICAEMIA
     Route: 048
     Dates: start: 20070610, end: 20070712
  5. LASIX [Concomitant]
     Indication: CARDIAC FAILURE
     Route: 048
  6. DIGOXIN [Concomitant]
     Indication: CARDIAC FAILURE
     Route: 048
     Dates: start: 20070502
  7. TANADOPA [Concomitant]
     Indication: CARDIAC FAILURE
     Route: 048
     Dates: start: 20070502
  8. ALDACTONE [Concomitant]
     Indication: CARDIAC FAILURE
     Route: 048
  9. LENDORM [Concomitant]
     Indication: INSOMNIA
     Route: 048

REACTIONS (2)
  - AGRANULOCYTOSIS [None]
  - DEHYDRATION [None]
